FAERS Safety Report 18427259 (Version 2)
Quarter: 2020Q4

REPORT INFORMATION
  Report Type: Other
  Country: ES (occurrence: ES)
  Receive Date: 20201026
  Receipt Date: 20201207
  Transmission Date: 20210114
  Serious: Yes (Other)
  Sender: FDA-Public Use
  Company Number: ES-ROCHE-2700511

PATIENT

DRUGS (1)
  1. RITUXIMAB. [Suspect]
     Active Substance: RITUXIMAB
     Indication: AUTOIMMUNE DISORDER
     Route: 042

REACTIONS (16)
  - Ductal adenocarcinoma of pancreas [Unknown]
  - Infection [Unknown]
  - Urinary tract infection [Unknown]
  - Skin cancer [Unknown]
  - Herpes zoster [Unknown]
  - Soft tissue infection [Unknown]
  - Respiratory tract infection [Unknown]
  - Gastrointestinal infection [Unknown]
  - Neutropenia [Unknown]
  - Septic shock [Unknown]
  - Skin infection [Unknown]
  - Infusion related reaction [Unknown]
  - Bladder cancer [Unknown]
  - Pneumocystis jirovecii pneumonia [Unknown]
  - Interstitial lung disease [Unknown]
  - Genital infection female [Unknown]
